FAERS Safety Report 11969968 (Version 1)
Quarter: 2016Q1

REPORT INFORMATION
  Report Type: Spontaneous
  Country: US (occurrence: None)
  Receive Date: 20160126
  Receipt Date: 20160126
  Transmission Date: 20160526
  Serious: Yes (Other)
  Sender: FDA-Public Use
  Company Number: None

PATIENT
  Age: 55 Year
  Sex: Female
  Weight: 73.94 kg

DRUGS (1)
  1. RECLAST [Suspect]
     Active Substance: ZOLEDRONIC ACID
     Indication: OSTEOPOROSIS
     Dosage: INFUSE 5MG/100ML IV OVER 30 MI  ONCE EVERY 365 DAY  INTRAVENOUS
     Route: 042
     Dates: start: 20151231

REACTIONS (4)
  - Myalgia [None]
  - Activities of daily living impaired [None]
  - Malaise [None]
  - Joint swelling [None]

NARRATIVE: CASE EVENT DATE: 20151231
